FAERS Safety Report 13114430 (Version 1)
Quarter: 2017Q1

REPORT INFORMATION
  Report Type: Spontaneous
  Country: IT (occurrence: IT)
  Receive Date: 20170113
  Receipt Date: 20170113
  Transmission Date: 20170428
  Serious: Yes (Other)
  Sender: FDA-Public Use
  Company Number: IT-ELI_LILLY_AND_COMPANY-IT201701003079

PATIENT
  Age: 65 Year
  Sex: Male
  Weight: 100 kg

DRUGS (6)
  1. FLUOROURACILE [Concomitant]
     Active Substance: FLUOROURACIL
     Dosage: 4800 MG, UNK
     Dates: start: 20160818, end: 20160820
  2. LEVOFOLINIC ACID [Concomitant]
     Active Substance: LEVOLEUCOVORIN
     Indication: COLON CANCER METASTATIC
     Dosage: 400 MG, UNKNOWN
     Route: 040
     Dates: start: 20160818, end: 20160818
  3. ERBITUX [Suspect]
     Active Substance: CETUXIMAB
     Dosage: 500 MG, CYCLICAL
     Route: 042
     Dates: start: 20160825
  4. FLUOROURACILE [Concomitant]
     Active Substance: FLUOROURACIL
     Indication: COLON CANCER METASTATIC
     Dosage: 800 MG, UNKNOWN
     Route: 040
     Dates: start: 20160818, end: 20160818
  5. ERBITUX [Suspect]
     Active Substance: CETUXIMAB
     Indication: COLON CANCER METASTATIC
     Dosage: 800 MG, CYCLICAL
     Route: 042
     Dates: start: 20160818
  6. IRINOTECAN [Concomitant]
     Active Substance: IRINOTECAN
     Indication: COLON CANCER METASTATIC
     Dosage: 300 MG, UNKNOWN
     Route: 065
     Dates: start: 20160818, end: 20160818

REACTIONS (2)
  - Rash pustular [Recovered/Resolved]
  - Dermatitis acneiform [Recovered/Resolved]

NARRATIVE: CASE EVENT DATE: 20160828
